FAERS Safety Report 5093079-8 (Version None)
Quarter: 2006Q3

REPORT INFORMATION
  Report Type: 
  Country: None (occurrence: None)
  Receive Date: 20060828
  Receipt Date: 20060821
  Transmission Date: 20061208
  Serious: Yes (Hospitalization)
  Sender: FDA-Public Use
  Company Number: 2006-146898-NL

PATIENT
  Age: 77 Year
  Sex: Female

DRUGS (2)
  1. DANAPAROID SODIUM [Suspect]
     Dosage: 2250 ANTI-XA SUBCUTANEOUS
     Route: 058
     Dates: start: 20060705, end: 20060710
  2. HEPARIN CALCIUM [Suspect]
     Dosage: 0.4 ML SUBCUTANEOUS
     Route: 058
     Dates: start: 20060627, end: 20060705

REACTIONS (2)
  - HEPARIN-INDUCED THROMBOCYTOPENIA [None]
  - IMMUNOLOGY TEST ABNORMAL [None]
